FAERS Safety Report 8539482-2 (Version None)
Quarter: 2012Q3

REPORT INFORMATION
  Report Type: 
  Country: None (occurrence: None)
  Receive Date: 20120726
  Receipt Date: 20120716
  Transmission Date: 20120928
  Serious: Yes (Hospitalization)
  Sender: FDA-Public Use
  Company Number: FR-US-EMD SERONO, INC.-7147640

PATIENT
  Age: 39 Year
  Sex: Female

DRUGS (3)
  1. GONAL-F [Suspect]
     Indication: OVULATION INDUCTION
     Route: 058
     Dates: start: 20110504, end: 20110513
  2. GONADORELIN INJ [Suspect]
     Indication: OVULATION INDUCTION
     Route: 058
     Dates: start: 20110504, end: 20110513
  3. CHORIONIC GONADOTROPIN [Suspect]
     Indication: PRODUCT USED FOR UNKNOWN INDICATION
     Route: 030
     Dates: start: 20110515, end: 20110515

REACTIONS (2)
  - OVARIAN HYPERSTIMULATION SYNDROME [None]
  - ABDOMINAL CAVITY DRAINAGE [None]
